FAERS Safety Report 18528934 (Version 7)
Quarter: 2021Q1

REPORT INFORMATION
  Report Type: Report from Study
  Country: US (occurrence: US)
  Receive Date: 20201120
  Receipt Date: 20210314
  Transmission Date: 20210419
  Serious: Yes (Other)
  Sender: FDA-Public Use
  Company Number: NVSC2020US305132

PATIENT
  Age: 62 Year
  Sex: Male

DRUGS (1)
  1. ENTRESTO [Suspect]
     Active Substance: SACUBITRIL\VALSARTAN
     Indication: PRODUCT USED FOR UNKNOWN INDICATION
     Dosage: 200 MG, BID (97/103 MG)
     Route: 048
     Dates: start: 2019

REACTIONS (11)
  - Nasopharyngitis [Recovering/Resolving]
  - Cough [Recovering/Resolving]
  - Intestinal obstruction [Unknown]
  - Decreased appetite [Unknown]
  - Hypertension [Unknown]
  - Gastrointestinal disorder [Unknown]
  - Memory impairment [Unknown]
  - Product dose omission issue [Recovered/Resolved]
  - Intentional dose omission [Recovering/Resolving]
  - Sinus disorder [Recovering/Resolving]
  - Fluid intake reduced [Unknown]

NARRATIVE: CASE EVENT DATE: 20201110
